FAERS Safety Report 23770218 (Version 3)
Quarter: 2024Q2

REPORT INFORMATION
  Report Type: Report from Study
  Country: US (occurrence: US)
  Receive Date: 20240422
  Receipt Date: 20240502
  Transmission Date: 20240715
  Serious: Yes (Hospitalization, Other)
  Sender: FDA-Public Use
  Company Number: US-MYLANLABS-2024M1035629

PATIENT
  Sex: Female
  Weight: 72.57 kg

DRUGS (1)
  1. GLATIRAMER ACETATE [Suspect]
     Active Substance: GLATIRAMER ACETATE
     Indication: Multiple sclerosis
     Dosage: 40 MILLIGRAM, 3XW (3X PER WEEK)
     Route: 065

REACTIONS (3)
  - Multiple sclerosis relapse [Unknown]
  - Muscle spasticity [Unknown]
  - Adverse event [Unknown]
